FAERS Safety Report 13996445 (Version 4)
Quarter: 2017Q4

REPORT INFORMATION
  Report Type: Spontaneous
  Country: JP (occurrence: JP)
  Receive Date: 20170921
  Receipt Date: 20171102
  Transmission Date: 20180321
  Serious: Yes (Hospitalization, Other)
  Sender: FDA-Public Use
  Company Number: JP-GLAXOSMITHKLINE-JP2017JPN142934

PATIENT
  Age: 75 Year
  Sex: Female

DRUGS (4)
  1. LAMICTAL [Suspect]
     Active Substance: LAMOTRIGINE
     Indication: BIPOLAR DISORDER
     Dosage: 25 MG, QD
     Route: 048
     Dates: start: 20170803, end: 20170831
  2. DOGMATYL [Suspect]
     Active Substance: SULPIRIDE
     Indication: BIPOLAR DISORDER
     Dosage: 100 MG, 1D
     Route: 048
     Dates: start: 20170622, end: 20170831
  3. ZYPREXA [Suspect]
     Active Substance: OLANZAPINE
     Indication: BIPOLAR DISORDER
     Dosage: 2.5 MG, 1D
     Route: 048
     Dates: start: 20170424, end: 20170831
  4. DOGMATYL [Suspect]
     Active Substance: SULPIRIDE
     Dosage: 50 MG, 1D
     Route: 048

REACTIONS (6)
  - Erythema of eyelid [Recovering/Resolving]
  - Hyperthermia [Recovering/Resolving]
  - Ocular hyperaemia [Recovering/Resolving]
  - Erythema [Recovering/Resolving]
  - Drug eruption [Recovering/Resolving]
  - Delirium [Recovering/Resolving]

NARRATIVE: CASE EVENT DATE: 2017
